FAERS Safety Report 12370871 (Version 1)
Quarter: 2016Q2

REPORT INFORMATION
  Report Type: Spontaneous
  Country: US (occurrence: US)
  Receive Date: 20160516
  Receipt Date: 20160516
  Transmission Date: 20160815
  Serious: Yes (Hospitalization, Other)
  Sender: FDA-Public Use
  Company Number: US-STRIDES ARCOLAB LIMITED-2016SP003172

PATIENT

DRUGS (2)
  1. TACROLIMUS. [Suspect]
     Active Substance: TACROLIMUS
     Indication: IMMUNOSUPPRESSION
     Dosage: UNK
     Route: 065
  2. CYCLOSPORINE. [Suspect]
     Active Substance: CYCLOSPORINE
     Indication: IMMUNOSUPPRESSION
     Dosage: UNK
     Route: 065

REACTIONS (9)
  - Disorientation [Recovered/Resolved]
  - Status epilepticus [Unknown]
  - Headache [Unknown]
  - Central nervous system lesion [Recovered/Resolved]
  - Aphasia [Unknown]
  - Condition aggravated [Unknown]
  - Inappropriate affect [Recovered/Resolved]
  - MELAS syndrome [Unknown]
  - Blindness [Unknown]
